FAERS Safety Report 7998246 (Version 7)
Quarter: 2012Q4

REPORT INFORMATION
  Report Type: 
  Country: US (occurrence: US)
  Receive Date: 20110620
  Receipt Date: 20120911
  Transmission Date: 20130627
  Serious: Yes (Disabling, Other)
  Sender: FDA-Public Use
  Company Number: US-009507513-1106USA02218

PATIENT

DRUGS (3)
  1. FOSAMAX [Suspect]
     Indication: BONE DENSITY DECREASED
     Dosage: 70 mg, UNK
     Route: 048
     Dates: start: 20020312, end: 20071010
  2. SYNTHROID [Concomitant]
     Indication: THYROID DISORDER
     Dates: start: 1990
  3. VERAPAMIL SR [Concomitant]
     Indication: HYPERTENSION
     Dates: start: 1990

REACTIONS (20)
  - Osteomyelitis [Not Recovered/Not Resolved]
  - Myocardial infarction [Unknown]
  - Osteonecrosis of jaw [Not Recovered/Not Resolved]
  - Hyperlipidaemia [Unknown]
  - Cemento osseous dysplasia [Unknown]
  - Granuloma [Unknown]
  - Dental fistula [Unknown]
  - Thrombosis [Unknown]
  - Oropharyngeal discomfort [Unknown]
  - Ventricular extrasystoles [Unknown]
  - Nausea [Unknown]
  - Thyroid neoplasm [Unknown]
  - Musculoskeletal chest pain [Unknown]
  - Gastrooesophageal reflux disease [Unknown]
  - Ovarian cyst [Unknown]
  - Coronary artery bypass [Unknown]
  - Arteriosclerosis [Unknown]
  - Dizziness [Unknown]
  - Fatigue [Unknown]
  - Vertigo [Unknown]
